FAERS Safety Report 6866258-4 (Version None)
Quarter: 2010Q2

REPORT INFORMATION
  Report Type: 
  Country: None (occurrence: None)
  Receive Date: 20100601
  Receipt Date: 20100519
  Transmission Date: 20101027
  Serious: No
  Sender: FDA-Public Use
  Company Number: 2010-00456

PATIENT
  Age: 55 Year
  Sex: Male
  Weight: 74.8435 kg

DRUGS (2)
  1. ZICAM COLD REMEDY GEL SWABS [Suspect]
     Dosage: SPORADIC ; ABOUT 1 YR AGO-SPORADIC
  2. LIPITOR [Concomitant]

REACTIONS (1)
  - ANOSMIA [None]
